FAERS Safety Report 13014201 (Version 3)
Quarter: 2017Q1

REPORT INFORMATION
  Report Type: Report from Study
  Country: None (occurrence: NL)
  Receive Date: 20161209
  Receipt Date: 20170313
  Transmission Date: 20170428
  Serious: Yes (Hospitalization)
  Sender: FDA-Public Use
  Company Number: NL-ABBVIE-16K-114-1803918-00

PATIENT
  Sex: Male
  Weight: 62 kg

DRUGS (1)
  1. DUODOPA [Suspect]
     Active Substance: CARBIDOPA\LEVODOPA
     Indication: PRODUCT USED FOR UNKNOWN INDICATION
     Dosage: MORNING DOSE:  6  CONTINUOUS DOSE:?4     EXTRA DOSE: 3.7   NIGHT DOSE: 3
     Route: 050
     Dates: start: 20081128

REACTIONS (13)
  - Bradykinesia [Not Recovered/Not Resolved]
  - Fatigue [Unknown]
  - Stoma site discharge [Not Recovered/Not Resolved]
  - Muscle tightness [Unknown]
  - Speech disorder [Recovering/Resolving]
  - Muscle rigidity [Not Recovered/Not Resolved]
  - Gait disturbance [Not Recovered/Not Resolved]
  - Dyskinesia [Recovering/Resolving]
  - Stoma site extravasation [Not Recovered/Not Resolved]
  - Abnormal dreams [Not Recovered/Not Resolved]
  - Hallucination, visual [Recovering/Resolving]
  - Stoma site erythema [Not Recovered/Not Resolved]
  - Nocturia [Not Recovered/Not Resolved]
